FAERS Safety Report 8926286 (Version 1)
Quarter: 2012Q4

REPORT INFORMATION
  Report Type: 
  Country: BR (occurrence: BR)
  Receive Date: 20121126
  Receipt Date: 20121126
  Transmission Date: 20130627
  Serious: Yes (Other)
  Sender: FDA-Public Use
  Company Number: PHHY2012BR108094

PATIENT
  Sex: Male

DRUGS (2)
  1. RITALINA [Suspect]
     Indication: ATTENTION DEFICIT/HYPERACTIVITY DISORDER
     Dosage: UNK
     Dates: end: 20121102
  2. TOFRANIL [Concomitant]

REACTIONS (3)
  - Depression [Unknown]
  - Crying [Unknown]
  - Apathy [Unknown]
